FAERS Safety Report 5596644-4 (Version None)
Quarter: 2007Q4

REPORT INFORMATION
  Report Type: 
  Country: None (occurrence: None)
  Receive Date: 20071219
  Receipt Date: 20071102
  Transmission Date: 20080405
  Serious: Yes (Other)
  Sender: FDA-Public Use
  Company Number: US-WYE-H01036107

PATIENT
  Age: 49 Year
  Sex: Female
  Weight: 76.73 kg

DRUGS (5)
  1. TORISEL [Suspect]
     Indication: RENAL CELL CARCINOMA STAGE UNSPECIFIED
     Dosage: 25 MG 1X PER 1 WK, INTRAVENOUS
     Route: 042
     Dates: start: 20071008
  2. NORVASC [Concomitant]
  3. PERCOCET [Concomitant]
  4. PREVACID [Concomitant]
  5. MEGACE [Concomitant]

REACTIONS (1)
  - LIP SWELLING [None]
